FAERS Safety Report 21194138 (Version 1)
Quarter: 2022Q3

REPORT INFORMATION
  Report Type: Spontaneous
  Country: US (occurrence: US)
  Receive Date: 20220810
  Receipt Date: 20220810
  Transmission Date: 20221026
  Serious: No
  Sender: FDA-Public Use
  Company Number: US-BAYER-2022A107997

PATIENT
  Sex: Male

DRUGS (1)
  1. MIRALAX [Suspect]
     Active Substance: POLYETHYLENE GLYCOL 3350
     Indication: Gastrointestinal motility disorder
     Dosage: UNK
     Dates: start: 2022

REACTIONS (2)
  - Faecal volume decreased [Not Recovered/Not Resolved]
  - Drug ineffective for unapproved indication [None]

NARRATIVE: CASE EVENT DATE: 20220101
